FAERS Safety Report 16791948 (Version 5)
Quarter: 2023Q4

REPORT INFORMATION
  Report Type: Report from Study
  Country: US (occurrence: US)
  Receive Date: 20190910
  Receipt Date: 20231220
  Transmission Date: 20240109
  Serious: Yes (Other)
  Sender: FDA-Public Use
  Company Number: US-SHIRE-US201929007

PATIENT
  Sex: Female

DRUGS (1)
  1. VELAGLUCERASE ALFA [Suspect]
     Active Substance: VELAGLUCERASE ALFA
     Indication: Gaucher^s disease type I
     Dosage: UNK UNK, 1/WEEK
     Route: 042
     Dates: start: 20100624

REACTIONS (3)
  - Cerebrovascular accident [Unknown]
  - Cardiac failure congestive [Recovered/Resolved]
  - Illness [Recovered/Resolved]
